FAERS Safety Report 18123906 (Version 1)
Quarter: 2020Q3

REPORT INFORMATION
  Report Type: Spontaneous
  Country: US (occurrence: US)
  Receive Date: 20200807
  Receipt Date: 20200807
  Transmission Date: 20201103
  Serious: No
  Sender: FDA-Public Use
  Company Number: US-TECHDOW-2019TECHDOW000004

PATIENT

DRUGS (1)
  1. HEPARIN SODIUM INJECTION, USP (PARABENS WITH NACL) [Suspect]
     Active Substance: HEPARIN SODIUM

REACTIONS (1)
  - Haemorrhage [Unknown]
